FAERS Safety Report 6179486-0 (Version None)
Quarter: 2009Q2

REPORT INFORMATION
  Report Type: 
  Country: None (occurrence: None)
  Receive Date: 20090505
  Receipt Date: 20090424
  Transmission Date: 20091009
  Serious: Yes (Other)
  Sender: FDA-Public Use
  Company Number: PL-ROCHE-629573

PATIENT
  Sex: Female

DRUGS (3)
  1. BONIVA [Suspect]
     Indication: OSTEOPOROSIS
     Route: 048
     Dates: start: 20090101, end: 20090201
  2. VITAMINUM D3 [Concomitant]
     Indication: OSTEOPOROSIS
     Dosage: DRUG: VITRUM CALCIUM/ CALCIUM, VITAMINUM D3
     Route: 048
     Dates: start: 20090101
  3. OSTEOGENON [Concomitant]
     Indication: OSTEOPOROSIS
     Dosage: DRUG: OSTEOGENON/OSSEINUM HYDROXYAPATITUM COMPOSITUM
     Route: 048
     Dates: start: 20090101

REACTIONS (3)
  - CHEST PAIN [None]
  - DYSPNOEA [None]
  - ECZEMA [None]
